FAERS Safety Report 6550986-4 (Version None)
Quarter: 2010Q1

REPORT INFORMATION
  Report Type: 
  Country: None (occurrence: None)
  Receive Date: 20100122
  Receipt Date: 20100122
  Transmission Date: 20100710
  Serious: No
  Sender: FDA-Public Use
  Company Number: None

PATIENT
  Age: 61 Year
  Sex: Male
  Weight: 90 kg

DRUGS (1)
  1. MORPHINE [Suspect]
     Indication: PAIN
     Dosage: 45 MG BID PO
     Route: 048
     Dates: start: 20060406, end: 20090910

REACTIONS (9)
  - CONSTIPATION [None]
  - DYSURIA [None]
  - FALL [None]
  - FLUID RETENTION [None]
  - NIGHTMARE [None]
  - PRURITUS [None]
  - RASH [None]
  - SWELLING [None]
  - URTICARIA [None]
